FAERS Safety Report 11475285 (Version 1)
Quarter: 2015Q3

REPORT INFORMATION
  Report Type: Spontaneous
  Country: US (occurrence: None)
  Receive Date: 20150902
  Receipt Date: 20150902
  Transmission Date: 20151125
  Serious: Yes (Hospitalization)
  Sender: FDA-Public Use
  Company Number: A-US2015-115517

PATIENT
  Age: 66 Year
  Sex: Male

DRUGS (4)
  1. LETAIRIS [Concomitant]
     Active Substance: AMBRISENTAN
  2. TYVASO [Concomitant]
     Active Substance: TREPROSTINIL
  3. WARFARIN (WARFARIN) [Concomitant]
     Active Substance: WARFARIN
  4. VELETRI [Suspect]
     Active Substance: EPOPROSTENOL
     Indication: PULMONARY ARTERIAL HYPERTENSION
     Dosage: 16 NG/KG, PER MIN
     Route: 042
     Dates: start: 20150303

REACTIONS (3)
  - Hypoxia [None]
  - Dyspnoea [None]
  - Respiratory failure [None]

NARRATIVE: CASE EVENT DATE: 20150426
